FAERS Safety Report 13672807 (Version 1)
Quarter: 2017Q2

REPORT INFORMATION
  Report Type: Spontaneous
  Country: US (occurrence: US)
  Receive Date: 20170621
  Receipt Date: 20170621
  Transmission Date: 20170830
  Serious: No
  Sender: FDA-Public Use
  Company Number: US-ASTRAZENECA-2017SE63684

PATIENT
  Age: 33268 Day
  Sex: Female
  Weight: 59 kg

DRUGS (2)
  1. QUETIAPINE FUMARATE. [Suspect]
     Active Substance: QUETIAPINE FUMARATE
     Indication: PARANOIA
     Dosage: 25 MG IN THE MORNING, 25 MG AT NOON AND 50 MG AT NIGHT
     Route: 048
     Dates: start: 2010, end: 20170610
  2. QUETIAPINE FUMARATE. [Suspect]
     Active Substance: QUETIAPINE FUMARATE
     Indication: ABNORMAL BEHAVIOUR
     Dosage: 25 MG IN THE MORNING, 25 MG AT NOON AND 50 MG AT NIGHT
     Route: 048
     Dates: start: 2010, end: 20170610

REACTIONS (10)
  - General physical health deterioration [Not Recovered/Not Resolved]
  - Dysphagia [Not Recovered/Not Resolved]
  - Nausea [Unknown]
  - Hypophagia [Not Recovered/Not Resolved]
  - Drug dose omission [Not Recovered/Not Resolved]
  - Dementia [Not Recovered/Not Resolved]
  - Communication disorder [Not Recovered/Not Resolved]
  - Product use issue [Recovered/Resolved]
  - Altered state of consciousness [Not Recovered/Not Resolved]
  - Vomiting [Unknown]

NARRATIVE: CASE EVENT DATE: 201703
